FAERS Safety Report 15547527 (Version 1)
Quarter: 2018Q4

REPORT INFORMATION
  Report Type: Spontaneous
  Country: US (occurrence: US)
  Receive Date: 20181024
  Receipt Date: 20181024
  Transmission Date: 20190205
  Serious: No
  Sender: FDA-Public Use
  Company Number: US-PERRIGO-17US029951

PATIENT
  Age: 83 Year
  Sex: Female
  Weight: 61.22 kg

DRUGS (2)
  1. ENTOCORT EC [Suspect]
     Active Substance: BUDESONIDE
     Indication: CROHN^S DISEASE
     Dosage: 6 MG, QD
     Route: 048
     Dates: start: 20171002
  2. H2-RECEPTOR ANTAGONISTS [Concomitant]
     Active Substance: UNSPECIFIED INGREDIENT
     Indication: GASTROOESOPHAGEAL REFLUX DISEASE
     Dosage: UNK
     Route: 065

REACTIONS (2)
  - Night sweats [Unknown]
  - Flatulence [Unknown]

NARRATIVE: CASE EVENT DATE: 201711
